FAERS Safety Report 7440799-3 (Version None)
Quarter: 2011Q2

REPORT INFORMATION
  Report Type: 
  Country: None (occurrence: None)
  Receive Date: 20110427
  Receipt Date: 20110419
  Transmission Date: 20111010
  Serious: Yes (Hospitalization)
  Sender: FDA-Public Use
  Company Number: CA-MEDIMMUNE-MEDI-0012787

PATIENT
  Age: 7 Month
  Sex: Female

DRUGS (2)
  1. SYNAGIS [Suspect]
     Route: 030
     Dates: start: 20100311, end: 20100311
  2. FOUR MORE UNKNOWN IMMUNIZATIONS [Concomitant]
     Dates: start: 20100113, end: 20100113

REACTIONS (5)
  - MOTOR DYSFUNCTION [None]
  - FACIAL PARESIS [None]
  - FEEDING DISORDER NEONATAL [None]
  - UPPER RESPIRATORY TRACT INFECTION [None]
  - ASTHENIA [None]
